FAERS Safety Report 12818710 (Version 1)
Quarter: 2016Q4

REPORT INFORMATION
  Report Type: Report from Study
  Country: DE (occurrence: DE)
  Receive Date: 20161006
  Receipt Date: 20161006
  Transmission Date: 20170207
  Serious: Yes (Hospitalization)
  Sender: FDA-Public Use
  Company Number: DE-TEVA-698918GER

PATIENT
  Age: 46 Year
  Sex: Female
  Weight: 62 kg

DRUGS (4)
  1. MYOCET [Suspect]
     Active Substance: DOXORUBICIN
     Indication: BREAST CANCER FEMALE
     Dosage: LAST DOSE PRIOR TO SAE: 16-SEP-2015
     Route: 042
     Dates: start: 20150812, end: 20150923
  2. PERTUZUMAB [Suspect]
     Active Substance: PERTUZUMAB
     Indication: BREAST CANCER FEMALE
     Dosage: LAST DOSE PRIOR TO SAE: 02-SEP-2015
     Route: 042
     Dates: start: 20150812, end: 20150923
  3. TRASTUZUMAB [Suspect]
     Active Substance: TRASTUZUMAB
     Indication: BREAST CANCER FEMALE
     Dosage: LAST DOSE PRIOR TO SAE: 02-SEP-2015
     Route: 042
     Dates: start: 20150812, end: 20150923
  4. PACLITAXEL. [Suspect]
     Active Substance: PACLITAXEL
     Indication: BREAST CANCER FEMALE
     Dosage: LAST DOSE PRIOR TO SAE: 16-SEP-2015
     Route: 042
     Dates: start: 20150812, end: 20150923

REACTIONS (2)
  - Pneumonitis [Recovered/Resolved]
  - Body temperature increased [Recovered/Resolved]

NARRATIVE: CASE EVENT DATE: 20160923
